FAERS Safety Report 25752717 (Version 1)
Quarter: 2025Q3

REPORT INFORMATION
  Report Type: Spontaneous
  Country: CN (occurrence: CN)
  Receive Date: 20250902
  Receipt Date: 20250902
  Transmission Date: 20251020
  Serious: Yes (Life-Threatening)
  Sender: PFIZER
  Company Number: CN-PFIZER INC-PV202500104478

PATIENT
  Age: 16 Year
  Sex: Female
  Weight: 49 kg

DRUGS (1)
  1. CYTARABINE [Suspect]
     Active Substance: CYTARABINE
     Indication: Acute lymphocytic leukaemia
     Dosage: 1454.000 MG, 1X/DAY
     Route: 041
     Dates: start: 20250707, end: 20250708

REACTIONS (10)
  - Hypersensitivity [Recovered/Resolved]
  - Dizziness [Recovered/Resolved]
  - Chest discomfort [Recovered/Resolved]
  - Body temperature increased [Recovered/Resolved]
  - Respiratory rate increased [Recovered/Resolved]
  - Blood pressure diastolic decreased [Recovered/Resolved]
  - Heart rate increased [Recovered/Resolved]
  - Pharyngeal erythema [Recovered/Resolved]
  - Flushing [Recovered/Resolved]
  - Tonsillar hypertrophy [Recovered/Resolved]

NARRATIVE: CASE EVENT DATE: 20250708
